FAERS Safety Report 10187431 (Version 1)
Quarter: 2014Q2

REPORT INFORMATION
  Report Type: Report from Study
  Country: US (occurrence: US)
  Receive Date: 20140522
  Receipt Date: 20140522
  Transmission Date: 20141212
  Serious: Yes (Hospitalization)
  Sender: FDA-Public Use
  Company Number: US-PURDUE-USA-2014-0114093

PATIENT
  Age: 86 Year
  Sex: Female

DRUGS (3)
  1. OXY CR TAB [Suspect]
     Indication: BACK PAIN
     Dosage: 40 MG, Q8H
     Route: 048
     Dates: start: 200706
  2. OXY CR TAB [Suspect]
     Dosage: 30 MG, Q8H
     Route: 048
  3. NEXIUM                             /01479302/ [Concomitant]
     Indication: GASTROOESOPHAGEAL REFLUX DISEASE
     Dosage: 40 MG, BID

REACTIONS (2)
  - Diverticulitis [Recovered/Resolved]
  - Chest pain [Not Recovered/Not Resolved]
